FAERS Safety Report 20604555 (Version 2)
Quarter: 2022Q2

REPORT INFORMATION
  Report Type: Report from Study
  Country: AT (occurrence: AT)
  Receive Date: 20220316
  Receipt Date: 20220411
  Transmission Date: 20220720
  Serious: Yes (Hospitalization, Other)
  Sender: FDA-Public Use
  Company Number: AT-ABBVIE-22K-009-4317982-00

PATIENT
  Sex: Male
  Weight: 105 kg

DRUGS (5)
  1. SKYRIZI [Suspect]
     Active Substance: RISANKIZUMAB-RZAA
     Indication: Psoriasis
     Route: 058
     Dates: start: 202007, end: 202105
  2. SKYRIZI [Suspect]
     Active Substance: RISANKIZUMAB-RZAA
     Dosage: REGULAR DOSING
     Route: 058
     Dates: start: 20220321
  3. CARVEDILOL [Concomitant]
     Active Substance: CARVEDILOL
     Indication: Product used for unknown indication
  4. VALSARTAN [Concomitant]
     Active Substance: VALSARTAN
     Indication: Product used for unknown indication
  5. PREDNISOLONE [Concomitant]
     Active Substance: PREDNISOLONE
     Indication: Psoriasis

REACTIONS (3)
  - Gastrointestinal carcinoma [Unknown]
  - Adenocarcinoma [Recovered/Resolved]
  - Metastases to peritoneum [Recovered/Resolved]

NARRATIVE: CASE EVENT DATE: 20210101
